FAERS Safety Report 6538178-6 (Version None)
Quarter: 2010Q1

REPORT INFORMATION
  Report Type: 
  Country: None (occurrence: None)
  Receive Date: 20100111
  Receipt Date: 20091229
  Transmission Date: 20100710
  Serious: Yes (Death, Hospitalization)
  Sender: FDA-Public Use
  Company Number: A-CH2009-32878

PATIENT
  Age: 64 Year
  Sex: Female
  Weight: 56 kg

DRUGS (5)
  1. TRACLEER [Suspect]
     Indication: PULMONARY ARTERIAL HYPERTENSION
     Dosage: 125 MG, BID, ORAL
     Route: 048
     Dates: start: 20070911, end: 20090128
  2. ASPIRIN [Concomitant]
  3. VASTINAN (TRIMETAZIDINE HYDROCHLORIDE) [Concomitant]
  4. SIGMART (NICORANDIL) [Concomitant]
  5. CLOPIDOGREL [Concomitant]

REACTIONS (3)
  - ASTHENIA [None]
  - COMA [None]
  - FALL [None]
